FAERS Safety Report 25880731 (Version 2)
Quarter: 2025Q4

REPORT INFORMATION
  Report Type: Spontaneous
  Country: JO (occurrence: JO)
  Receive Date: 20251004
  Receipt Date: 20251119
  Transmission Date: 20260117
  Serious: Yes (Other)
  Sender: NOVARTIS
  Company Number: JO-002147023-NVSC2025JO149277

PATIENT
  Sex: Male

DRUGS (1)
  1. BEOVU [Suspect]
     Active Substance: BROLUCIZUMAB-DBLL
     Indication: Diabetic retinal oedema
     Dosage: 0.05 ML
     Route: 031

REACTIONS (4)
  - Inflammatory marker increased [Recovered/Resolved]
  - Retinal vascular occlusion [Unknown]
  - Eye inflammation [Recovered/Resolved]
  - Vitreous floaters [Recovered/Resolved]
